FAERS Safety Report 7127317-4 (Version None)
Quarter: 2010Q4

REPORT INFORMATION
  Report Type: 
  Country: None (occurrence: None)
  Receive Date: 20101129
  Receipt Date: 20100506
  Transmission Date: 20110411
  Serious: No
  Sender: FDA-Public Use
  Company Number: US-PFIZER INC-2010057645

PATIENT
  Sex: Male
  Weight: 77.098 kg

DRUGS (3)
  1. VIAGRA [Suspect]
     Dosage: 100 MG, AS NEEDED
     Route: 048
  2. DEPAKOTE [Concomitant]
     Indication: CONVULSION
     Dosage: 750 MG, 2X/DAY
     Route: 048
  3. SOTALOL [Concomitant]
     Indication: ATRIAL FIBRILLATION
     Dosage: 80 MG, 2X/DAY
     Route: 048

REACTIONS (3)
  - CYANOPSIA [None]
  - DRUG INEFFECTIVE [None]
  - MEDICATION ERROR [None]
